FAERS Safety Report 19402161 (Version 1)
Quarter: 2021Q2

REPORT INFORMATION
  Report Type: Spontaneous
  Country: HR (occurrence: HR)
  Receive Date: 20210610
  Receipt Date: 20210610
  Transmission Date: 20210717
  Serious: Yes (Other)
  Sender: FDA-Public Use
  Company Number: HR-MYLANLABS-2021M1033550

PATIENT
  Sex: Female
  Weight: 100 kg

DRUGS (7)
  1. NEBIVOLOL. [Suspect]
     Active Substance: NEBIVOLOL
     Indication: PRODUCT USED FOR UNKNOWN INDICATION
     Dosage: 2.5 MILLIGRAM (2.5 MG)
  2. PERINDOPRIL [Suspect]
     Active Substance: PERINDOPRIL
     Indication: PRODUCT USED FOR UNKNOWN INDICATION
     Dosage: UNK
  3. ATORVASTATIN [Suspect]
     Active Substance: ATORVASTATIN
     Indication: PRODUCT USED FOR UNKNOWN INDICATION
     Dosage: 20 MILLIGRAM (20 MG)
  4. METFORMIN [Suspect]
     Active Substance: METFORMIN HYDROCHLORIDE
     Indication: PRODUCT USED FOR UNKNOWN INDICATION
     Dosage: UNK
  5. MOXONIDINE [Suspect]
     Active Substance: MOXONIDINE
     Indication: PRODUCT USED FOR UNKNOWN INDICATION
     Dosage: 0.2 MILLIGRAM (0.2 MG)
  6. GLICLAZIDE [Suspect]
     Active Substance: GLICLAZIDE
     Indication: PRODUCT USED FOR UNKNOWN INDICATION
     Dosage: 60 MILLIGRAM (60 MG)
  7. ASPIRIN                            /00002701/ [Suspect]
     Active Substance: ASPIRIN
     Indication: PRODUCT USED FOR UNKNOWN INDICATION
     Dosage: UNK

REACTIONS (13)
  - Nausea [Unknown]
  - Peripheral arterial occlusive disease [Unknown]
  - Hyperhidrosis [Unknown]
  - Exercise tolerance decreased [Recovering/Resolving]
  - Coronary artery occlusion [Unknown]
  - Vomiting [Unknown]
  - Coronary artery disease [Recovering/Resolving]
  - Chest pain [Unknown]
  - Angina pectoris [Recovering/Resolving]
  - Peripheral ischaemia [Unknown]
  - Myocardial ischaemia [Unknown]
  - Intermittent claudication [Unknown]
  - Peripheral artery stenosis [Unknown]

NARRATIVE: CASE EVENT DATE: 201311
